FAERS Safety Report 18695053 (Version 1)
Quarter: 2021Q1

REPORT INFORMATION
  Report Type: Spontaneous
  Country: US (occurrence: US)
  Receive Date: 20210102
  Receipt Date: 20210102
  Transmission Date: 20210419
  Serious: No
  Sender: FDA-Public Use
  Company Number: None

PATIENT
  Age: 6 Year
  Sex: Female
  Weight: 18.9 kg

DRUGS (2)
  1. GUANFACINE EXTENDED?RELEASE [Suspect]
     Active Substance: GUANFACINE
     Indication: ATTENTION DEFICIT HYPERACTIVITY DISORDER
     Dosage: ?          QUANTITY:1 TABLET(S);?
     Route: 048
     Dates: start: 20201216, end: 20201223
  2. GUANFACINE EXTENDED?RELEASE [Suspect]
     Active Substance: GUANFACINE
     Indication: ANXIETY
     Dosage: ?          QUANTITY:1 TABLET(S);?
     Route: 048
     Dates: start: 20201216, end: 20201223

REACTIONS (6)
  - Anxiety [None]
  - Paranoia [None]
  - Somnambulism [None]
  - Hallucination [None]
  - Formication [None]
  - Insomnia [None]

NARRATIVE: CASE EVENT DATE: 20201219
